FAERS Safety Report 6519812-3 (Version None)
Quarter: 2009Q4

REPORT INFORMATION
  Report Type: 
  Country: None (occurrence: None)
  Receive Date: 20091228
  Receipt Date: 20091228
  Transmission Date: 20100525
  Serious: Yes (Other)
  Sender: FDA-Public Use
  Company Number: None

PATIENT
  Age: 30 Year
  Sex: Male
  Weight: 92.9874 kg

DRUGS (4)
  1. SERTRALINE HYDROCHLORIDE [Suspect]
     Indication: ANXIETY
     Dosage: 2 TABS DAILY PO
     Route: 048
     Dates: start: 20091025, end: 20091116
  2. SERTRALINE HYDROCHLORIDE [Suspect]
     Indication: STRESS
     Dosage: 2 TABS DAILY PO
     Route: 048
     Dates: start: 20091025, end: 20091116
  3. SERTRALINE HYDROCHLORIDE [Suspect]
     Indication: ANXIETY
     Dosage: 2 TABS DAILY PO
     Route: 048
     Dates: start: 20091116, end: 20091223
  4. SERTRALINE HYDROCHLORIDE [Suspect]
     Indication: STRESS
     Dosage: 2 TABS DAILY PO
     Route: 048
     Dates: start: 20091116, end: 20091223

REACTIONS (2)
  - DRUG INEFFECTIVE [None]
  - PRODUCT SUBSTITUTION ISSUE [None]
